FAERS Safety Report 21944526 (Version 2)
Quarter: 2023Q1

REPORT INFORMATION
  Report Type: Spontaneous
  Country: CA (occurrence: CA)
  Receive Date: 20230202
  Receipt Date: 20230203
  Transmission Date: 20230418
  Serious: Yes (Hospitalization, Disabling, Other)
  Sender: FDA-Public Use
  Company Number: US-BAYER-2012-071601

PATIENT
  Age: 30 Year
  Sex: Female
  Weight: 76 kg

DRUGS (10)
  1. YAZ [Suspect]
     Active Substance: DROSPIRENONE\ETHINYL ESTRADIOL
     Indication: Ovarian cyst
     Dosage: UNK
     Route: 048
     Dates: start: 201003, end: 20100414
  2. CLOXACILLIN SODIUM [Concomitant]
     Active Substance: CLOXACILLIN SODIUM
     Dosage: 250MG CAPSULES TAKE 2 CAPSULES AT ONCE THEN TAKE 1 CAPSULE EVERY 6 HOURS UNTIL FINISHED.
  3. PERCOCET [Concomitant]
     Active Substance: ACETAMINOPHEN\OXYCODONE HYDROCHLORIDE
     Dosage: 2 EVERY 4 HOURS
     Dates: start: 20091214
  4. PHOSPHATES [Concomitant]
     Dosage: UNK
     Dates: start: 20091214
  5. DOCUSATE SODIUM [Concomitant]
     Active Substance: DOCUSATE SODIUM
     Dosage: UNK
     Dates: start: 20091214
  6. IBUPROFEN [Concomitant]
     Active Substance: IBUPROFEN
     Dosage: UNK
     Dates: start: 20091214
  7. CLINDAMYCIN [Concomitant]
     Active Substance: CLINDAMYCIN
  8. CEPHALEXIN [Concomitant]
     Active Substance: CEPHALEXIN
  9. ENDOCET [Concomitant]
     Active Substance: ACETAMINOPHEN\OXYCODONE HYDROCHLORIDE
  10. DOXYCYCLINE HYCLATE [Concomitant]
     Active Substance: DOXYCYCLINE HYCLATE

REACTIONS (10)
  - Cerebrovascular accident [None]
  - Embolic stroke [None]
  - Brain stem infarction [None]
  - Cerebral infarction [None]
  - Paraesthesia [None]
  - Hypoaesthesia [None]
  - Visual impairment [None]
  - Pain [None]
  - Anxiety [None]
  - Post stroke depression [None]

NARRATIVE: CASE EVENT DATE: 20100301
